FAERS Safety Report 22324886 (Version 2)
Quarter: 2023Q2

REPORT INFORMATION
  Report Type: Spontaneous
  Country: CN (occurrence: CN)
  Receive Date: 20230516
  Receipt Date: 20230525
  Transmission Date: 20230722
  Serious: Yes (Other)
  Sender: FDA-Public Use
  Company Number: CN-PFIZER INC-PV202300085017

PATIENT
  Age: 3 Year
  Sex: Male
  Weight: 17 kg

DRUGS (4)
  1. AZITHROMYCIN [Suspect]
     Active Substance: AZITHROMYCIN
     Indication: Anti-infective therapy
     Dosage: 150 MG, 1X/DAY
     Route: 048
     Dates: start: 20230425, end: 20230428
  2. ACETAMINOPHEN [Suspect]
     Active Substance: ACETAMINOPHEN
     Indication: Pyrexia
     Dosage: 1.7 ML, 2X/DAY
     Route: 048
     Dates: start: 20230424, end: 20230425
  3. AMOXICILLIN\CLAVULANATE POTASSIUM [Suspect]
     Active Substance: AMOXICILLIN\CLAVULANATE POTASSIUM
     Indication: Anti-infective therapy
     Dosage: 0.5 G, 3X/DAY
     Route: 041
     Dates: start: 20230423, end: 20230425
  4. OSELTAMIVIR PHOSPHATE [Suspect]
     Active Substance: OSELTAMIVIR PHOSPHATE
     Indication: Antiviral treatment
     Dosage: 45 MG, 2X/DAY
     Route: 048
     Dates: start: 20230423, end: 20230427

REACTIONS (3)
  - Systemic inflammatory response syndrome [Unknown]
  - White blood cell count decreased [Recovering/Resolving]
  - Off label use [Unknown]

NARRATIVE: CASE EVENT DATE: 20230425
